FAERS Safety Report 21649580 (Version 1)
Quarter: 2022Q4

REPORT INFORMATION
  Report Type: Spontaneous
  Country: US (occurrence: US)
  Receive Date: 20221128
  Receipt Date: 20221128
  Transmission Date: 20230112
  Serious: No
  Sender: FDA-Public Use
  Company Number: US-SANOFI-01378117

PATIENT
  Age: 76 Year
  Sex: Female

DRUGS (2)
  1. TOUJEO [Suspect]
     Active Substance: INSULIN GLARGINE
     Indication: Diabetes mellitus
     Dosage: 10 U, QD
  2. TOUJEO MAX [Concomitant]
     Active Substance: INSULIN GLARGINE
     Dosage: 8 U

REACTIONS (4)
  - Urinary tract infection [Unknown]
  - Injection site pain [Unknown]
  - Expired product administered [Unknown]
  - Incorrect dose administered [Unknown]
